FAERS Safety Report 4296452-0 (Version None)
Quarter: 2004Q1

REPORT INFORMATION
  Report Type: 
  Country: None (occurrence: None)
  Receive Date: 20040122
  Receipt Date: 20031009
  Transmission Date: 20041129
  Serious: Yes (Other)
  Sender: FDA-Public Use
  Company Number: 2003039369

PATIENT
  Sex: Female

DRUGS (1)
  1. RELPAX [Suspect]
     Indication: ILL-DEFINED DISORDER
     Dosage: 40 MG
     Dates: start: 20030917, end: 20030101

REACTIONS (4)
  - ARTHRALGIA [None]
  - FEELING HOT [None]
  - PAIN IN EXTREMITY [None]
  - PARAESTHESIA [None]
